FAERS Safety Report 22535804 (Version 2)
Quarter: 2023Q2

REPORT INFORMATION
  Report Type: Spontaneous
  Country: US (occurrence: US)
  Receive Date: 20230608
  Receipt Date: 20230630
  Transmission Date: 20230721
  Serious: No
  Sender: FDA-Public Use
  Company Number: US-SA-SAC20230607000080

PATIENT
  Sex: Female
  Weight: 84.3 kg

DRUGS (4)
  1. DUPIXENT [Suspect]
     Active Substance: DUPILUMAB
     Indication: Dermatitis atopic
     Dosage: 300 MG, QOW
     Route: 058
     Dates: start: 201905
  2. LORATADINE [Concomitant]
     Active Substance: LORATADINE
  3. TYLENOL [Concomitant]
     Active Substance: ACETAMINOPHEN
  4. B12 ACTIVE [Concomitant]

REACTIONS (4)
  - Sleep disorder [Unknown]
  - Dermatitis atopic [Not Recovered/Not Resolved]
  - Pruritus [Not Recovered/Not Resolved]
  - Feeling hot [Not Recovered/Not Resolved]
